FAERS Safety Report 18589219 (Version 1)
Quarter: 2020Q4

REPORT INFORMATION
  Report Type: Spontaneous
  Country: DE (occurrence: DE)
  Receive Date: 20201208
  Receipt Date: 20201208
  Transmission Date: 20210114
  Serious: Yes (Other)
  Sender: FDA-Public Use
  Company Number: DE-TEVA-2020-DE-1854878

PATIENT
  Age: 18 Year
  Sex: Male
  Weight: 51 kg

DRUGS (13)
  1. KALYDECO [Suspect]
     Active Substance: IVACAFTOR
     Indication: CYSTIC FIBROSIS
     Dosage: 150 MILLIGRAM DAILY;
     Route: 048
     Dates: start: 20200408
  2. MOVICOL [Concomitant]
     Active Substance: POLYETHYLENE GLYCOL 3350\POTASSIUM CHLORIDE\SODIUM BICARBONATE\SODIUM CHLORIDE
     Indication: CYSTIC FIBROSIS
     Route: 048
     Dates: start: 20190731
  3. ACC 200 [Concomitant]
     Active Substance: ACETYLCYSTEINE
     Indication: CYSTIC FIBROSIS
     Dosage: 200 MILLIGRAM DAILY;
     Route: 048
     Dates: start: 20190731
  4. PULMOZYME 2500E/2,5ML [Concomitant]
     Indication: CYSTIC FIBROSIS
     Dosage: 2500 IU (INTERNATIONAL UNIT) DAILY;
     Route: 055
     Dates: start: 20190731
  5. ATROVENT LS 250UG/ML [Concomitant]
     Indication: CYSTIC FIBROSIS
     Dosage: DAILY DOSE: 30 DF DOSAGE FORM EVERY DAYS 2 SEPARATED DOSES
     Route: 055
     Dates: start: 20181011
  6. SALBUTAMOL [Concomitant]
     Active Substance: ALBUTEROL
     Indication: CYSTIC FIBROSIS
     Dosage: DAILY DOSE: 10 GTT DROP(S) EVERY DAYS 2 SEPARATED DOSES
     Route: 055
     Dates: start: 20190301
  7. TOBRAMYCIN. [Suspect]
     Active Substance: TOBRAMYCIN
     Indication: PSEUDOMONAS TEST POSITIVE
     Dosage: DAILY DOSE: 600 MG MILLIGRAM(S) EVERY DAYS 2 SEPARATED DOSES
     Route: 055
     Dates: start: 20200408, end: 20200506
  8. KREON [Concomitant]
     Active Substance: PANCRELIPASE
     Indication: CYSTIC FIBROSIS
     Route: 048
     Dates: start: 20190731
  9. FORMOTEROL 12UG [Concomitant]
     Indication: CYSTIC FIBROSIS
     Dosage: DAILY DOSE: 24 UG MICROGRAM(S) EVERY DAYS 2 SEPARATED DOSES
     Route: 055
     Dates: start: 20190731
  10. NATRIUMCHLORID 0,9% [Concomitant]
     Indication: CYSTIC FIBROSIS
     Dosage: DAILY DOSE: 5 ML MILLILITER(S) EVERY DAYS 2 SEPARATED DOSES
     Route: 055
     Dates: start: 20190731
  11. SYMKEVI 100/150MG [Suspect]
     Active Substance: IVACAFTOR\TEZACAFTOR
     Indication: CYSTIC FIBROSIS
     Dosage: 1 DOSAGE FORMS DAILY;
     Route: 048
     Dates: start: 20200408
  12. OMEPRAZOL [Concomitant]
     Active Substance: OMEPRAZOLE
     Indication: CYSTIC FIBROSIS
     Route: 048
     Dates: start: 20190226
  13. ADEK [Concomitant]
     Indication: CYSTIC FIBROSIS
     Route: 048
     Dates: start: 20181011

REACTIONS (2)
  - Increased bronchial secretion [Recovered/Resolved]
  - Throat tightness [Recovered/Resolved]

NARRATIVE: CASE EVENT DATE: 20200408
